FAERS Safety Report 11893240 (Version 1)
Quarter: 2016Q1

REPORT INFORMATION
  Report Type: Other
  Country: NL (occurrence: NL)
  Receive Date: 20160106
  Receipt Date: 20160106
  Transmission Date: 20160526
  Serious: Yes (Hospitalization)
  Sender: FDA-Public Use
  Company Number: NL-MYLANLABS-2015M1047233

PATIENT

DRUGS (4)
  1. PRAMIPEXOL [Concomitant]
     Active Substance: PRAMIPEXOLE
     Dosage: 20.25 MG, UNK (20.25 MG, UNK (1 KEER PER DAG 4.5 STUK(S)))
     Route: 048
     Dates: start: 20130101
  2. VENLAFAXINE [Interacting]
     Active Substance: VENLAFAXINE HYDROCHLORIDE
     Indication: DEPRESSION
     Dosage: 75 MG, QD (1 KEER PER DAG 1 STUK(S))
     Route: 048
     Dates: start: 20130101
  3. SINEMET [Interacting]
     Active Substance: CARBIDOPA\LEVODOPA
     Indication: PARKINSON^S DISEASE
     Dosage: 250 MG, TID (3 KEER PER DAG 2 STUK(S))
     Route: 048
     Dates: start: 20130101
  4. ENTACAPONE. [Suspect]
     Active Substance: ENTACAPONE
     Indication: PARKINSON^S DISEASE
     Dosage: 200 MG, QID (4 KEER PER DAG 1 STUK(S))
     Route: 048
     Dates: start: 20151127, end: 20151203

REACTIONS (2)
  - Drug interaction [Recovered/Resolved]
  - Palpitations [Recovered/Resolved]

NARRATIVE: CASE EVENT DATE: 20151130
